FAERS Safety Report 12559395 (Version 1)
Quarter: 2016Q3

REPORT INFORMATION
  Report Type: Report from Study
  Country: CA (occurrence: CA)
  Receive Date: 20160715
  Receipt Date: 20160715
  Transmission Date: 20161109
  Serious: Yes (Death, Other)
  Sender: FDA-Public Use
  Company Number: CA-009507513-1607CAN006504

PATIENT
  Age: 63 Year
  Sex: Male

DRUGS (2)
  1. POSANOL [Suspect]
     Active Substance: POSACONAZOLE
     Indication: STEM CELL TRANSPLANT
     Dosage: 300 MG, DAILY
     Route: 048
     Dates: start: 20151124, end: 20160707
  2. POSANOL [Suspect]
     Active Substance: POSACONAZOLE
     Indication: INFECTION PROPHYLAXIS

REACTIONS (1)
  - Death [Fatal]

NARRATIVE: CASE EVENT DATE: 20160707
